FAERS Safety Report 10040706 (Version 1)
Quarter: 2014Q1

REPORT INFORMATION
  Report Type: Spontaneous
  Country: US (occurrence: US)
  Receive Date: 20140327
  Receipt Date: 20140327
  Transmission Date: 20141002
  Serious: Yes (Hospitalization, Other)
  Sender: FDA-Public Use
  Company Number: US-SUN PHARMACEUTICAL INDUSTRIES LTD-2014SUN00654

PATIENT
  Age: 65 Year
  Sex: Male

DRUGS (10)
  1. LITHIUM CARBONATE TABLETS, USP 300MG [Suspect]
     Indication: BIPOLAR I DISORDER
     Dosage: 300 MG, TID
     Route: 048
  2. LITHIUM CARBONATE TABLETS, USP 300MG [Suspect]
     Dosage: UNK
     Route: 048
  3. LISINOPRIL [Suspect]
     Indication: PRODUCT USED FOR UNKNOWN INDICATION
     Dosage: 10 MG, QD
     Route: 048
  4. METOPROLOL [Concomitant]
     Dosage: 25 MG, QD
     Route: 048
  5. ASPIRIN [Concomitant]
     Dosage: 81 MG, QD
     Route: 048
  6. WARFARIN [Concomitant]
     Dosage: 5 MG, QHS
     Route: 048
  7. SPIRONOLACTONE [Concomitant]
     Dosage: 12.5 MG, QD
     Route: 048
  8. SIMVASTATIN [Concomitant]
     Dosage: 40 MG, QHS
     Route: 048
  9. GABAPENTIN [Concomitant]
     Dosage: 600 MG, TID
     Route: 048
  10. SILDENAFIL [Concomitant]
     Dosage: 100 MG, QD, PRN

REACTIONS (8)
  - Aphasia [Recovered/Resolved]
  - Head injury [Recovered/Resolved]
  - Fall [Recovered/Resolved]
  - Memory impairment [None]
  - Confusional state [Recovered/Resolved]
  - Tremor [Recovered/Resolved]
  - Toxicity to various agents [Recovered/Resolved]
  - Medication error [Unknown]
